FAERS Safety Report 7088548-5 (Version None)
Quarter: 2010Q4

REPORT INFORMATION
  Report Type: 
  Country: None (occurrence: None)
  Receive Date: 20101108
  Receipt Date: 20101026
  Transmission Date: 20110411
  Serious: Yes (Other)
  Sender: FDA-Public Use
  Company Number: CA-NICOBRDEV-2010-14249

PATIENT
  Age: 70 Year
  Sex: Female

DRUGS (3)
  1. OXYTROL [Suspect]
     Indication: PRODUCT USED FOR UNKNOWN INDICATION
     Dosage: ^2 EVERY 1 WEEK(S)^
     Route: 062
  2. LIPIDIL [Concomitant]
     Indication: PRODUCT USED FOR UNKNOWN INDICATION
     Dosage: UNK
     Route: 048
  3. SYNTHROID [Concomitant]
     Indication: PRODUCT USED FOR UNKNOWN INDICATION
     Dosage: UNK
     Route: 048

REACTIONS (10)
  - ABDOMINAL DISCOMFORT [None]
  - DRY MOUTH [None]
  - DYSURIA [None]
  - GAIT DISTURBANCE [None]
  - GASTROINTESTINAL PAIN [None]
  - MUSCULOSKELETAL STIFFNESS [None]
  - MYALGIA [None]
  - POLYDIPSIA [None]
  - THIRST [None]
  - THROAT IRRITATION [None]
